FAERS Safety Report 4400469-2 (Version None)
Quarter: 2004Q3

REPORT INFORMATION
  Report Type: 
  Country: None (occurrence: None)
  Receive Date: 20040714
  Receipt Date: 20040630
  Transmission Date: 20050211
  Serious: Yes (Other)
  Sender: FDA-Public Use
  Company Number: US_0407104003

PATIENT
  Age: 76 Year
  Sex: Female

DRUGS (2)
  1. FORTEO [Suspect]
  2. MIACALCIN [Concomitant]

REACTIONS (2)
  - HIP FRACTURE [None]
  - ILL-DEFINED DISORDER [None]
